FAERS Safety Report 24544849 (Version 1)
Quarter: 2024Q4

REPORT INFORMATION
  Report Type: Report from Study
  Country: US (occurrence: US)
  Receive Date: 20241024
  Receipt Date: 20241024
  Transmission Date: 20250114
  Serious: Yes (Other)
  Sender: GILEAD
  Company Number: US-GILEAD-2024-0684779

PATIENT
  Age: 40 Year
  Sex: Female

DRUGS (3)
  1. AZTREONAM LYSINE [Suspect]
     Active Substance: AZTREONAM LYSINE
     Indication: Cystic fibrosis
     Dosage: 1 ML, TID/ CAYSTON 75 MG/ML (28 DAYS ON AND 28 DAYS OFF)
     Route: 055
  2. TRIKAFTA [Concomitant]
     Active Substance: ELEXACAFTOR\IVACAFTOR\TEZACAFTOR
     Dosage: UNK (TAKE 2 ORANGE TABLETS IN THE MORNING AND 1 BLUE TABLET IN THE EVENING APPROXIMATELY 12 HOURS AP
  3. PULMOZYME [Concomitant]
     Active Substance: DORNASE ALFA
     Dosage: UNK (INHALE 1 AMPULE (2.5 MG) VIA NEBULIZER ONCE A DAY)

REACTIONS (1)
  - Disease progression [Unknown]

NARRATIVE: CASE EVENT DATE: 20240901
